FAERS Safety Report 7564157-6 (Version None)
Quarter: 2011Q2

REPORT INFORMATION
  Report Type: 
  Country: None (occurrence: None)
  Receive Date: 20110622
  Receipt Date: 20110617
  Transmission Date: 20111010
  Serious: Yes (Hospitalization)
  Sender: FDA-Public Use
  Company Number: US-PFIZER INC-2010047277

PATIENT
  Sex: Male
  Weight: 88.4 kg

DRUGS (17)
  1. ZETIA [Concomitant]
     Dosage: 10 MG, 1X/DAY
     Route: 048
     Dates: start: 20060101
  2. EPLERENONE [Suspect]
     Dosage: 50 MG, UNK
     Route: 048
     Dates: start: 20090507, end: 20100412
  3. SINEMET [Concomitant]
     Dosage: 150/600 MG TID
     Route: 048
     Dates: start: 20080310
  4. SENNA [Concomitant]
     Dosage: 17.2 MG, 2X/DAY
     Route: 048
     Dates: start: 20080310
  5. FUROSEMIDE [Concomitant]
     Dosage: 40 MG, 1X/DAY
     Route: 048
     Dates: start: 20040101, end: 20100412
  6. UROXATRAL [Concomitant]
     Dosage: 10 MG, 1X/DAY
     Route: 048
     Dates: start: 20070101, end: 20100412
  7. EPLERENONE [Suspect]
     Indication: CARDIAC FAILURE
     Dosage: 25 MG, UNK
     Route: 048
     Dates: start: 20090407, end: 20090506
  8. METOPROLOL [Concomitant]
     Dosage: 50 MG, 2X/DAY
     Route: 048
     Dates: start: 20060101, end: 20100412
  9. ASPIRIN [Concomitant]
     Dosage: 325 MG, 1X/DAY
     Route: 048
     Dates: start: 19990101
  10. PLAVIX [Concomitant]
     Dosage: 75 MG, 1X/DAY
     Route: 048
     Dates: start: 20080301
  11. AMIODARONE [Concomitant]
     Dosage: 200 MG, 1X/DAY
     Route: 048
     Dates: start: 20091215
  12. AMIODARONE [Concomitant]
     Dosage: 200 MG, 1/2 TABLET ONCE DAILY
     Route: 048
     Dates: start: 20091215
  13. PRILOSEC [Concomitant]
     Dosage: 20 MG, AS NEEDED
     Route: 048
     Dates: start: 20080101, end: 20100412
  14. PROSCAR [Concomitant]
     Dosage: 5 MG, 1X/DAY
     Route: 048
     Dates: start: 20080401
  15. POTASSIUM CHLORIDE [Concomitant]
     Dosage: 10 MEQ, 1X/DAY
     Route: 048
     Dates: start: 20080401, end: 20100412
  16. PRINIVIL [Concomitant]
     Dosage: 5 MG, 1X/DAY
     Route: 048
     Dates: start: 20070101, end: 20100412
  17. NITROSTAT [Concomitant]
     Dosage: 0.4 MG, AS NEEDED
     Route: 048
     Dates: start: 20080112, end: 20100412

REACTIONS (1)
  - RENAL FAILURE ACUTE [None]
